FAERS Safety Report 16237923 (Version 1)
Quarter: 2019Q2

REPORT INFORMATION
  Report Type: Spontaneous
  Country: US (occurrence: US)
  Receive Date: 20190425
  Receipt Date: 20190425
  Transmission Date: 20190711
  Serious: No
  Sender: FDA-Public Use
  Company Number: US-MYLANLABS-2019M1034825

PATIENT
  Sex: Female
  Weight: 70 kg

DRUGS (3)
  1. HALOPERIDOL TABLETS, USP [Suspect]
     Active Substance: HALOPERIDOL
     Indication: ANXIETY
     Dosage: UNK
     Route: 048
  2. HALOPERIDOL TABLETS, USP [Suspect]
     Active Substance: HALOPERIDOL
     Indication: INSOMNIA
     Dosage: 3 MILLIGRAM, HS
     Route: 048
  3. ZYPREXA [Concomitant]
     Active Substance: OLANZAPINE

REACTIONS (1)
  - Drug ineffective for unapproved indication [Unknown]
